FAERS Safety Report 18961877 (Version 1)
Quarter: 2021Q1

REPORT INFORMATION
  Report Type: Spontaneous
  Country: CH (occurrence: CH)
  Receive Date: 20210302
  Receipt Date: 20210302
  Transmission Date: 20210420
  Serious: Yes (Other)
  Sender: FDA-Public Use
  Company Number: CH-BAXTER-2021BAX004127

PATIENT
  Sex: Female

DRUGS (4)
  1. METHYLENE BLUE. [Concomitant]
     Active Substance: METHYLENE BLUE
     Indication: PRODUCT USED FOR UNKNOWN INDICATION
     Route: 048
  2. HOLOXAN 2 G [Suspect]
     Active Substance: IFOSFAMIDE
     Dosage: GELATIN CAPSULE
     Route: 065
  3. HOLOXAN 2 G [Suspect]
     Active Substance: IFOSFAMIDE
     Indication: CHEMOTHERAPY
     Route: 042
  4. GLUCOSE 5% BAXTER [Suspect]
     Active Substance: DEXTROSE
     Indication: MEDICATION DILUTION
     Dosage: INFUSIONS
     Route: 042

REACTIONS (1)
  - Toxic encephalopathy [Unknown]
